FAERS Safety Report 21466916 (Version 1)
Quarter: 2022Q4

REPORT INFORMATION
  Report Type: Spontaneous
  Country: US (occurrence: None)
  Receive Date: 20221017
  Receipt Date: 20221017
  Transmission Date: 20230112
  Serious: No
  Sender: FDA-Public Use
  Company Number: US-USAntibiotics-000083

PATIENT
  Age: 56 Year
  Sex: Male

DRUGS (4)
  1. AUGMENTIN [Suspect]
     Active Substance: AMOXICILLIN\CLAVULANATE POTASSIUM
     Indication: Ear infection
  2. OFEV [Suspect]
     Active Substance: NINTEDANIB
     Indication: Idiopathic pulmonary fibrosis
     Dosage: 300 MG, 1 IN 1 DAY
     Route: 048
     Dates: start: 20220307
  3. VITAMINS [Suspect]
     Active Substance: VITAMINS
     Indication: Product used for unknown indication
  4. GLIPIZIDE [Concomitant]
     Active Substance: GLIPIZIDE
     Indication: Product used for unknown indication

REACTIONS (14)
  - Headache [Unknown]
  - Gastric disorder [Unknown]
  - Multiple allergies [Unknown]
  - Arthralgia [Unknown]
  - Diarrhoea [Unknown]
  - Nasal congestion [Unknown]
  - Abdominal discomfort [Unknown]
  - Gait disturbance [Unknown]
  - Constipation [Unknown]
  - Pain in extremity [Unknown]
  - Pain in extremity [Unknown]
  - Myalgia [Unknown]
  - Ear infection [Unknown]
  - Abdominal pain upper [Unknown]

NARRATIVE: CASE EVENT DATE: 20220301
